FAERS Safety Report 25176879 (Version 1)
Quarter: 2025Q2

REPORT INFORMATION
  Report Type: Spontaneous
  Country: US (occurrence: US)
  Receive Date: 20250409
  Receipt Date: 20250409
  Transmission Date: 20250716
  Serious: No
  Sender: AMGEN
  Company Number: US-AMGEN-USASP2025066277

PATIENT
  Age: 60 Year
  Sex: Female

DRUGS (2)
  1. REPATHA [Suspect]
     Active Substance: EVOLOCUMAB
     Indication: Blood cholesterol increased
     Dosage: UNK UNK, Q2WK (QOW)
     Route: 065
     Dates: start: 20250210
  2. DUPIXENT [Concomitant]
     Active Substance: DUPILUMAB
     Indication: Nasal polyps
     Dosage: 300 MILLIGRAM, Q2WK
     Route: 058
     Dates: start: 20241122

REACTIONS (1)
  - Rhinorrhoea [Recovered/Resolved]

NARRATIVE: CASE EVENT DATE: 20250211
